FAERS Safety Report 13284102 (Version 2)
Quarter: 2017Q1

REPORT INFORMATION
  Report Type: Spontaneous
  Country: IT (occurrence: IT)
  Receive Date: 20170301
  Receipt Date: 20170310
  Transmission Date: 20170428
  Serious: Yes (Hospitalization)
  Sender: FDA-Public Use
  Company Number: IT-PFIZER INC-2017086802

PATIENT
  Age: 77 Year
  Sex: Male

DRUGS (4)
  1. FLUOROURACILE AHCL [Suspect]
     Active Substance: FLUOROURACIL
     Indication: ADENOCARCINOMA
     Dosage: 500 MG, 300 MG PUMP 46H EVERY 2 WEEKS
     Route: 040
     Dates: start: 20170117, end: 20170117
  2. ZALTRAP [Suspect]
     Active Substance: ZIV-AFLIBERCEPT
     Indication: ADENOCARCINOMA
     Dosage: 360 MG, CYCLIC (EVERY TWO WEEKS)
     Route: 042
     Dates: start: 20170117, end: 20170117
  3. IRINOTECAN HCL [Suspect]
     Active Substance: IRINOTECAN HYDROCHLORIDE
     Indication: ADENOCARCINOMA
     Dosage: 210 MG, CYCLIC
     Route: 042
     Dates: start: 20170110, end: 20170110
  4. IRINOTECAN HCL [Suspect]
     Active Substance: IRINOTECAN HYDROCHLORIDE
     Dosage: 280 MG, CYCLIC
     Route: 042
     Dates: start: 20170117, end: 20170117

REACTIONS (4)
  - Subileus [Recovered/Resolved with Sequelae]
  - Diarrhoea [Recovered/Resolved with Sequelae]
  - Abdominal distension [Recovered/Resolved with Sequelae]
  - Faecal vomiting [Recovered/Resolved with Sequelae]

NARRATIVE: CASE EVENT DATE: 20170127
